FAERS Safety Report 6279626-9 (Version None)
Quarter: 2009Q3

REPORT INFORMATION
  Report Type: 
  Country: None (occurrence: None)
  Receive Date: 20090723
  Receipt Date: 20090715
  Transmission Date: 20100115
  Serious: Yes (Hospitalization)
  Sender: FDA-Public Use
  Company Number: B0584276A

PATIENT
  Sex: Female
  Weight: 68 kg

DRUGS (3)
  1. TOPOTECAN [Suspect]
     Indication: OVARIAN CANCER
     Dosage: 7.5MGM2 PER DAY
     Route: 042
     Dates: start: 20090528, end: 20090601
  2. CARBOPLATIN [Suspect]
     Indication: OVARIAN CANCER
     Dosage: 550MG PER DAY
     Route: 042
     Dates: start: 20090528, end: 20090601
  3. ENDOXAN [Suspect]
     Indication: OVARIAN CANCER
     Dosage: 5620MG PER DAY
     Route: 042
     Dates: start: 20090416, end: 20090416

REACTIONS (4)
  - FUNGAL OESOPHAGITIS [None]
  - GASTROINTESTINAL FUNGAL INFECTION [None]
  - GASTROINTESTINAL TOXICITY [None]
  - ORAL FUNGAL INFECTION [None]
